FAERS Safety Report 25373970 (Version 1)
Quarter: 2025Q2

REPORT INFORMATION
  Report Type: Spontaneous
  Country: US (occurrence: None)
  Receive Date: 20250528
  Receipt Date: 20250528
  Transmission Date: 20250716
  Serious: Yes (Hospitalization)
  Sender: FDA-CTU
  Company Number: None

PATIENT
  Sex: Male

DRUGS (8)
  1. RINVOQ [Suspect]
     Active Substance: UPADACITINIB
     Indication: Rheumatoid arthritis
     Route: 048
     Dates: start: 20250422
  2. CHLORHEX GLU SOL [Concomitant]
  3. GABAPENTIN [Concomitant]
     Active Substance: GABAPENTIN
  4. HUMIRA [Concomitant]
     Active Substance: ADALIMUMAB
  5. HYDROCHLOROTHIAZIDE [Concomitant]
     Active Substance: HYDROCHLOROTHIAZIDE
  6. KENALOG-40 [Concomitant]
     Active Substance: TRIAMCINOLONE ACETONIDE
  7. PREDNISONE [Concomitant]
     Active Substance: PREDNISONE
  8. SIMLANDI 2-PEN KIT [Concomitant]

REACTIONS (1)
  - Cardiac failure congestive [None]
